FAERS Safety Report 11879711 (Version 4)
Quarter: 2016Q3

REPORT INFORMATION
  Report Type: Report from Study
  Country: US (occurrence: US)
  Receive Date: 20151230
  Receipt Date: 20160728
  Transmission Date: 20161109
  Serious: Yes (Other)
  Sender: FDA-Public Use
  Company Number: US-AEGERION PHARMACEUTICAL INC.-AEGR002270

PATIENT
  Age: 68 Year
  Sex: Female
  Weight: 82.54 kg

DRUGS (1)
  1. JUXTAPID [Suspect]
     Active Substance: LOMITAPIDE MESYLATE
     Indication: TYPE IIA HYPERLIPIDAEMIA
     Dosage: 5 MG, QD
     Route: 048
     Dates: start: 20141028, end: 201603

REACTIONS (6)
  - Pancreatitis [Unknown]
  - Therapy cessation [Not Recovered/Not Resolved]
  - Gastric disorder [Recovered/Resolved]
  - Periodontal disease [Unknown]
  - Diarrhoea [Recovered/Resolved]
  - Weight decreased [Recovering/Resolving]

NARRATIVE: CASE EVENT DATE: 2015
